FAERS Safety Report 4651400-6 (Version None)
Quarter: 2005Q2

REPORT INFORMATION
  Report Type: 
  Country: None (occurrence: None)
  Receive Date: 20050404
  Receipt Date: 20041220
  Transmission Date: 20051028
  Serious: Yes (Hospitalization)
  Sender: FDA-Public Use
  Company Number: USA040979092

PATIENT
  Sex: Male

DRUGS (7)
  1. CYMBALTA [Suspect]
     Dosage: 60 MG/ 1 DAY
  2. HUMALOG [Concomitant]
  3. LANTUS [Concomitant]
  4. OXYCONTIN [Concomitant]
  5. NASONEX [Concomitant]
  6. DILAUDID [Concomitant]
  7. FORTAZ [Concomitant]

REACTIONS (3)
  - ABDOMINAL PAIN [None]
  - NAUSEA [None]
  - VOMITING [None]
